FAERS Safety Report 23905060 (Version 1)
Quarter: 2024Q2

REPORT INFORMATION
  Report Type: Spontaneous
  Country: US (occurrence: US)
  Receive Date: 20240527
  Receipt Date: 20240527
  Transmission Date: 20240716
  Serious: No
  Sender: FDA-Public Use
  Company Number: US-JNJFOC-20240555751

PATIENT
  Sex: Female

DRUGS (1)
  1. XARELTO [Suspect]
     Active Substance: RIVAROXABAN
     Indication: Thrombosis
     Route: 048
     Dates: start: 20240515

REACTIONS (16)
  - Hernia [Unknown]
  - Pain in extremity [Unknown]
  - Feeling abnormal [Unknown]
  - Palpitations [Recovered/Resolved]
  - Peripheral swelling [Unknown]
  - Sinus disorder [Unknown]
  - Sensation of foreign body [Unknown]
  - Myalgia [Unknown]
  - Contusion [Unknown]
  - Chest discomfort [Unknown]
  - Muscle spasms [Unknown]
  - Myalgia [Unknown]
  - Abdominal pain [Unknown]
  - Myalgia [Unknown]
  - Contusion [Unknown]
  - Pain in extremity [Unknown]

NARRATIVE: CASE EVENT DATE: 20240515
